FAERS Safety Report 22191786 (Version 1)
Quarter: 2023Q2

REPORT INFORMATION
  Report Type: Report from Study
  Country: DE (occurrence: DE)
  Receive Date: 20230410
  Receipt Date: 20230410
  Transmission Date: 20230721
  Serious: Yes (Hospitalization, Other)
  Sender: FDA-Public Use
  Company Number: None

PATIENT
  Age: 75 Year
  Sex: Female
  Weight: 59 kg

DRUGS (39)
  1. AMLODIPINE [Suspect]
     Active Substance: AMLODIPINE BESYLATE
     Indication: Product used for unknown indication
     Dosage: 1 MILLIGRAM, QD
     Route: 048
     Dates: start: 20170124, end: 20170224
  2. TAFINLAR [Suspect]
     Active Substance: DABRAFENIB MESYLATE
     Indication: Malignant melanoma
     Dosage: 150 MILLIGRAM, QD
     Route: 048
     Dates: start: 20161229, end: 20170110
  3. TAFINLAR [Suspect]
     Active Substance: DABRAFENIB MESYLATE
     Dosage: 75 MILLIGRAM, QD
     Route: 048
     Dates: start: 20170117, end: 20170122
  4. TAFINLAR [Suspect]
     Active Substance: DABRAFENIB MESYLATE
     Dosage: 75 MILLIGRAM, QD
     Route: 048
     Dates: start: 20170124, end: 20170224
  5. TAFINLAR [Suspect]
     Active Substance: DABRAFENIB MESYLATE
     Dosage: 150 MILLIGRAM, QD
     Route: 048
     Dates: start: 20170224, end: 20171119
  6. TRAMETINIB [Suspect]
     Active Substance: TRAMETINIB
     Indication: Malignant melanoma
     Dosage: 2 MILLIGRAM, QD
     Route: 048
     Dates: start: 20161229, end: 20170110
  7. TRAMETINIB [Suspect]
     Active Substance: TRAMETINIB
     Dosage: 2 MILLIGRAM, QD
     Route: 048
     Dates: start: 20170111, end: 20170116
  8. TRAMETINIB [Suspect]
     Active Substance: TRAMETINIB
     Dosage: 2 MILLIGRAM, QD
     Route: 048
     Dates: start: 20170117, end: 20170122
  9. TRAMETINIB [Suspect]
     Active Substance: TRAMETINIB
     Dosage: 1 MILLIGRAM, QD
     Route: 048
     Dates: start: 20170224, end: 20171119
  10. SODIUM BICARBONATE [Concomitant]
     Active Substance: SODIUM BICARBONATE
     Indication: Chronic kidney disease
     Dosage: 1000 MILLIGRAM, QD
     Route: 048
     Dates: start: 20170113
  11. CEFOTAXIME [Concomitant]
     Active Substance: CEFOTAXIME SODIUM
     Indication: Urinary tract infection
     Dosage: 4 GRAM, QD
     Route: 042
     Dates: start: 20161228, end: 20170102
  12. SIMVASTATIN [Concomitant]
     Active Substance: SIMVASTATIN
     Indication: Type 2 diabetes mellitus
     Dosage: 20 MILLIGRAM, QD
     Route: 048
     Dates: start: 20170130
  13. RAMIPRIL [Concomitant]
     Active Substance: RAMIPRIL
     Indication: Hypertension
     Dosage: 10 MILLIGRAM, QD
     Route: 048
     Dates: start: 20131115, end: 20161229
  14. RAMIPRIL [Concomitant]
     Active Substance: RAMIPRIL
     Dosage: 1.25 MILLIGRAM, QD
     Route: 048
     Dates: start: 20170130
  15. TORSEMIDE [Concomitant]
     Active Substance: TORSEMIDE
     Indication: Chronic kidney disease
     Dosage: 20 MILLIGRAM, QD
     Route: 048
     Dates: start: 20131230, end: 20170102
  16. TORSEMIDE [Concomitant]
     Active Substance: TORSEMIDE
     Dosage: 15 MILLIGRAM, QD
     Route: 048
     Dates: start: 20170103, end: 20170129
  17. TORSEMIDE [Concomitant]
     Active Substance: TORSEMIDE
     Dosage: 10 MILLIGRAM, QD
     Route: 048
     Dates: start: 20170130
  18. ACTRAPHANE [Concomitant]
     Active Substance: INSULIN HUMAN
     Indication: Type 2 diabetes mellitus
     Dosage: 14 INTERNATIONAL UNIT, QD
     Route: 058
     Dates: start: 20161027, end: 20161230
  19. ACTRAPHANE [Concomitant]
     Active Substance: INSULIN HUMAN
     Dosage: 12 INTERNATIONAL UNIT, QD
     Route: 058
     Dates: start: 20170124
  20. PANTOPRA Q [Concomitant]
     Indication: Dyspepsia
     Dosage: 20 MILLIGRAM, QD
     Route: 048
     Dates: start: 20161209, end: 20170113
  21. CLOPIDOGREL [Concomitant]
     Active Substance: CLOPIDOGREL BISULFATE
     Indication: Cardiac failure
     Dosage: 75 MILLIGRAM, QD
     Route: 048
     Dates: start: 20170130
  22. SODIUM POLYSTYRENE SULFONATE [Concomitant]
     Active Substance: SODIUM POLYSTYRENE SULFONATE
     Indication: Product used for unknown indication
     Dosage: 15 GRAM, QD
     Route: 065
     Dates: start: 20170503, end: 20170503
  23. SODIUM POLYSTYRENE SULFONATE [Concomitant]
     Active Substance: SODIUM POLYSTYRENE SULFONATE
     Dosage: 15 GRAM, QD
     Route: 048
     Dates: start: 20171109, end: 20171109
  24. FERRO-SANOL DUODENAL [Concomitant]
     Active Substance: FERROUS GLYCINE SULFATE
     Indication: Anaemia
     Dosage: 200 MILLIGRAM, QD (100 MG, BID)
     Route: 048
     Dates: start: 20161229
  25. AMLODIPINE [Concomitant]
     Active Substance: AMLODIPINE BESYLATE
     Indication: Hypertension
     Dosage: 10 MILLIGRAM, QD
     Route: 048
     Dates: start: 20170130, end: 20171201
  26. AMLODIPINE [Concomitant]
     Active Substance: AMLODIPINE BESYLATE
     Dosage: 5 MILLIGRAM, QD
     Route: 048
     Dates: start: 20171202
  27. LANTUS [Concomitant]
     Active Substance: INSULIN GLARGINE
     Indication: Type 2 diabetes mellitus
     Dosage: 10 INTERNATIONAL UNIT, QD
     Route: 058
     Dates: start: 20131230, end: 20161230
  28. RANITIDINE [Concomitant]
     Active Substance: RANITIDINE
     Indication: Dyspepsia
     Dosage: 300 MILLIGRAM, QD
     Route: 048
     Dates: start: 20170113
  29. METOPROLOL [Concomitant]
     Active Substance: METOPROLOL
     Indication: Hypertension
     Dosage: 47.5 MILLIGRAM, QD
     Route: 048
     Dates: start: 20161229, end: 20170101
  30. METOPROLOL [Concomitant]
     Active Substance: METOPROLOL
     Dosage: 90.5 MILLIGRAM, QD
     Route: 048
     Dates: start: 20170102, end: 20170129
  31. METOPROLOL [Concomitant]
     Active Substance: METOPROLOL
     Dosage: 23.75 MILLIGRAM, QD
     Route: 048
     Dates: start: 20170130
  32. METOPROLOL [Concomitant]
     Active Substance: METOPROLOL
     Dosage: 47.5 MILLIGRAM, QD
     Route: 048
     Dates: start: 20170516
  33. LEVOTHYROXINE SODIUM [Concomitant]
     Active Substance: LEVOTHYROXINE SODIUM
     Indication: Product used for unknown indication
     Dosage: 25 MICROGRAM, QD
     Route: 048
     Dates: start: 20170130, end: 20170302
  34. LEVOTHYROXINE SODIUM [Concomitant]
     Active Substance: LEVOTHYROXINE SODIUM
     Dosage: 75 MICROGRAM, QD
     Route: 048
     Dates: start: 20170503, end: 20170604
  35. LEVOTHYROXINE SODIUM [Concomitant]
     Active Substance: LEVOTHYROXINE SODIUM
     Dosage: 35 MICROGRAM, QD
     Route: 048
     Dates: start: 20170605
  36. HUMAN RED BLOOD CELL [Concomitant]
     Active Substance: HUMAN RED BLOOD CELL
     Indication: Anaemia
     Dosage: 600 MILLILITER, QD (300 ML, BID)
     Route: 042
     Dates: start: 20170103, end: 20170103
  37. CHOLECALCIFEROL [Concomitant]
     Active Substance: CHOLECALCIFEROL
     Indication: Vitamin D deficiency
     Dosage: 40000 INTERNATIONAL UNIT, QW (20000 IU, QW2)
     Route: 048
     Dates: start: 20161229
  38. CALCIUM CARBONATE [Concomitant]
     Active Substance: CALCIUM CARBONATE
     Indication: Cardiac failure
     Dosage: 500 MILLIGRAM, QD
     Route: 048
     Dates: start: 20170130, end: 20171201
  39. ASPIRIN [Concomitant]
     Active Substance: ASPIRIN
     Indication: Cardiac failure
     Dosage: 100 MILLIGRAM, QD
     Route: 048
     Dates: start: 20170130

REACTIONS (11)
  - Hypoglycaemia [Recovered/Resolved]
  - Urinary retention [Recovered/Resolved]
  - Coronary artery disease [Unknown]
  - Bundle branch block left [Unknown]
  - Atrioventricular block first degree [Not Recovered/Not Resolved]
  - Ischaemic cardiomyopathy [Not Recovered/Not Resolved]
  - Hyperkalaemia [Not Recovered/Not Resolved]
  - Cardiac arrest [Unknown]
  - Hypothyroidism [Not Recovered/Not Resolved]
  - Syncope [Recovered/Resolved]
  - Bradycardia [Recovered/Resolved]

NARRATIVE: CASE EVENT DATE: 20161230
